FAERS Safety Report 14626085 (Version 1)
Quarter: 2018Q1

REPORT INFORMATION
  Report Type: Spontaneous
  Country: AR (occurrence: AR)
  Receive Date: 20180312
  Receipt Date: 20180312
  Transmission Date: 20180509
  Serious: Yes (Hospitalization)
  Sender: FDA-Public Use
  Company Number: PHHY2018AR040836

PATIENT
  Age: 59 Year
  Sex: Female

DRUGS (1)
  1. SANDIMMUN [Suspect]
     Active Substance: CYCLOSPORINE
     Indication: DERMATITIS EXFOLIATIVE
     Dosage: 50 MG, BID
     Route: 065
     Dates: start: 201801, end: 20180215

REACTIONS (7)
  - Skin swelling [Unknown]
  - Erythema [Not Recovered/Not Resolved]
  - Skin reaction [Not Recovered/Not Resolved]
  - Skin burning sensation [Not Recovered/Not Resolved]
  - Stress [Unknown]
  - Memory impairment [Unknown]
  - Product use in unapproved indication [Unknown]

NARRATIVE: CASE EVENT DATE: 201801
